FAERS Safety Report 22388402 (Version 1)
Quarter: 2023Q2

REPORT INFORMATION
  Report Type: Spontaneous
  Country: US (occurrence: US)
  Receive Date: 20230531
  Receipt Date: 20230531
  Transmission Date: 20230722
  Serious: No
  Sender: FDA-Public Use
  Company Number: US-SA-SAC20230529001021

PATIENT
  Sex: Female
  Weight: 79.8 kg

DRUGS (18)
  1. DUPIXENT [Suspect]
     Active Substance: DUPILUMAB
     Indication: Dermatitis atopic
     Dosage: 300 MG, QOW
     Route: 058
  2. DUPIXENT [Suspect]
     Active Substance: DUPILUMAB
     Dosage: 300 MG, Q3W
     Route: 058
  3. TUMS [Concomitant]
     Active Substance: CALCIUM CARBONATE
  4. VITAMIN D3 [Concomitant]
     Active Substance: CHOLECALCIFEROL
  5. EPINEPHRINE [Concomitant]
     Active Substance: EPINEPHRINE
  6. TYLENOL EXTRA STRENGTH [Concomitant]
     Active Substance: ACETAMINOPHEN
  7. ALLEGRA ALLERGY [Concomitant]
     Active Substance: FEXOFENADINE HYDROCHLORIDE
  8. ACRIVASTINE [Concomitant]
     Active Substance: ACRIVASTINE
  9. GABAPENTIN [Concomitant]
     Active Substance: GABAPENTIN
  10. XIIDRA [Concomitant]
     Active Substance: LIFITEGRAST
  11. LORAZEPAM [Concomitant]
     Active Substance: LORAZEPAM
  12. TACROLIMUS [Concomitant]
     Active Substance: TACROLIMUS
  13. LISINOPRIL [Concomitant]
     Active Substance: LISINOPRIL
  14. VENLAFAXINE HCL [Concomitant]
     Active Substance: VENLAFAXINE HYDROCHLORIDE
     Dosage: VENLAFAXINE HCL ER 150 MG TAB ER 24
  15. ALBUTEROL SULFATE [Concomitant]
     Active Substance: ALBUTEROL SULFATE
  16. DULERA [Concomitant]
     Active Substance: FORMOTEROL FUMARATE DIHYDRATE\MOMETASONE FUROATE
  17. MILK OF MAGNESIA [Concomitant]
     Active Substance: MAGNESIUM HYDROXIDE
  18. VENLAFAXINE HCL [Concomitant]
     Active Substance: VENLAFAXINE HYDROCHLORIDE

REACTIONS (2)
  - Eyelid irritation [Unknown]
  - Off label use [Unknown]
